FAERS Safety Report 8531244 (Version 5)
Quarter: 2012Q4

REPORT INFORMATION
  Report Type: 
  Country: JP (occurrence: JP)
  Receive Date: 20120426
  Receipt Date: 20121217
  Transmission Date: 20130627
  Serious: Yes (Hospitalization, Other)
  Sender: FDA-Public Use
  Company Number: PHHY2012JP029344

PATIENT
  Age: 50 Year
  Sex: Male

DRUGS (4)
  1. NEORAL [Suspect]
     Indication: GRAFT VERSUS HOST DISEASE
     Dosage: 200 mg, daily
     Route: 048
  2. SANDIMMUN [Suspect]
     Indication: GRAFT VERSUS HOST DISEASE
     Dosage: 4 mg/kg, daily
     Route: 041
  3. PREDNISOLONE [Concomitant]
     Dosage: 1 mg/kg, UNK
  4. METHOTREXATE [Concomitant]

REACTIONS (15)
  - Neuropathy peripheral [Recovered/Resolved]
  - Paralysis [Recovered/Resolved]
  - Areflexia [Recovered/Resolved]
  - Sensory disturbance [Recovered/Resolved]
  - Muscular weakness [Recovered/Resolved]
  - Nerve conduction studies abnormal [Recovered/Resolved]
  - Guillain-Barre syndrome [Recovered/Resolved]
  - Erythema multiforme [Recovered/Resolved]
  - Acute graft versus host disease [Recovered/Resolved]
  - Cytomegalovirus infection [Recovered/Resolved]
  - Pyrexia [Recovered/Resolved]
  - Diarrhoea [Recovered/Resolved]
  - Dysphagia [Recovered/Resolved]
  - Dysphonia [Recovered/Resolved]
  - Dyspnoea [Recovered/Resolved]
